FAERS Safety Report 9303425 (Version 1)
Quarter: 2013Q2

REPORT INFORMATION
  Report Type: Spontaneous
  Country: CA (occurrence: CA)
  Receive Date: 20130522
  Receipt Date: 20130522
  Transmission Date: 20140414
  Serious: Yes (Other)
  Sender: FDA-Public Use
  Company Number: CA-ELI_LILLY_AND_COMPANY-CA201305004059

PATIENT
  Age: 76 Year
  Sex: Female

DRUGS (9)
  1. BABY ASPIRIN [Concomitant]
  2. HYDRAZIDE [Concomitant]
  3. SIMVASTATIN [Concomitant]
  4. PANTOLOC                           /01263204/ [Concomitant]
  5. LISINOPRIL [Concomitant]
  6. VITAMIN D [Concomitant]
  7. FORTEO [Suspect]
     Indication: OSTEOPOROSIS
     Dosage: 20 UG, QD
     Route: 058
     Dates: start: 20130425
  8. METFORMIN [Concomitant]
  9. QUININE [Concomitant]

REACTIONS (5)
  - Loss of consciousness [Not Recovered/Not Resolved]
  - Abdominal pain upper [Not Recovered/Not Resolved]
  - Decreased appetite [Not Recovered/Not Resolved]
  - Frequent bowel movements [Not Recovered/Not Resolved]
  - Asthenia [Not Recovered/Not Resolved]
